FAERS Safety Report 5834854-9 (Version None)
Quarter: 2008Q3

REPORT INFORMATION
  Report Type: 
  Country: None (occurrence: None)
  Receive Date: 20080723
  Receipt Date: 20070706
  Transmission Date: 20090109
  Serious: Yes (Life-Threatening, Other)
  Sender: FDA-Public Use
  Company Number: 07H-163-0312876-00

PATIENT
  Age: 95 Year
  Sex: Female
  Weight: 77.1115 kg

DRUGS (2)
  1. DEXTROSE 50% [Suspect]
     Indication: HYPOGLYCAEMIA
     Dosage: 25 GM, ONCE, INTRAVENOUS
     Route: 042
     Dates: start: 20070705, end: 20070705
  2. THIAMINE (THIAMINE) [Concomitant]

REACTIONS (1)
  - DRUG INEFFECTIVE [None]
